FAERS Safety Report 8621914-2 (Version None)
Quarter: 2012Q3

REPORT INFORMATION
  Report Type: 
  Country: None (occurrence: None)
  Receive Date: 20120822
  Receipt Date: 20120822
  Transmission Date: 20120928
  Serious: Yes (Other)
  Sender: FDA-Public Use
  Company Number: None

PATIENT
  Sex: Female

DRUGS (1)
  1. XELODA [Suspect]
     Indication: RECTAL CANCER
     Dosage: 500MG 2 TABS AM 2 TABSPM PO
     Route: 048
     Dates: start: 20120220, end: 20120820

REACTIONS (2)
  - TONGUE DISCOLOURATION [None]
  - SKIN DISCOLOURATION [None]
